FAERS Safety Report 11471641 (Version 1)
Quarter: 2015Q3

REPORT INFORMATION
  Report Type: Report from Study
  Country: JP (occurrence: JP)
  Receive Date: 20150908
  Receipt Date: 20150908
  Transmission Date: 20151125
  Serious: Yes (Hospitalization, Other)
  Sender: FDA-Public Use
  Company Number: JP-GLAXOSMITHKLINE INC.-A201311248

PATIENT
  Age: 68 Year
  Sex: Male
  Weight: 62 kg

DRUGS (24)
  1. ELTROMBOPAG [Suspect]
     Active Substance: ELTROMBOPAG
     Dosage: 25 MG, 1D
     Route: 048
     Dates: start: 20121113
  2. BARACLUDE [Concomitant]
     Active Substance: ENTECAVIR
     Dosage: 0.5 MG, 1D
     Dates: start: 20140305, end: 20140407
  3. DOPAREEL [Concomitant]
     Dosage: 7.5 MG, 1D
     Dates: start: 20121029, end: 20121031
  4. ELTROMBOPAG [Suspect]
     Active Substance: ELTROMBOPAG
     Indication: IMMUNE THROMBOCYTOPENIC PURPURA
     Dosage: 12.5 MG, 1D
     Route: 048
     Dates: start: 20120704, end: 20120717
  5. FOSAMAC 35MG [Concomitant]
     Dosage: 35 MG, 1D
     Dates: start: 20121029, end: 20121101
  6. AMOBAN [Concomitant]
     Active Substance: ZOPICLONE
     Dosage: 10 MG, 1D
     Dates: start: 20121031, end: 20121209
  7. AMLODIN OD [Concomitant]
     Active Substance: AMLODIPINE BESYLATE
     Dosage: 2.5 MG, 1D
     Dates: start: 20140305, end: 20140407
  8. ELTROMBOPAG [Suspect]
     Active Substance: ELTROMBOPAG
     Dosage: 37.5 MG, 1D
     Route: 048
     Dates: start: 20121024
  9. PREDONINE [Suspect]
     Active Substance: PREDNISOLONE\PREDNISOLONE ACETATE\PREDNISOLONE SODIUM SUCCINATE
     Indication: IMMUNE THROMBOCYTOPENIC PURPURA
     Dosage: 10 MG, 1D
     Route: 048
  10. PARIET [Concomitant]
     Active Substance: RABEPRAZOLE SODIUM
     Dosage: 10 MG, 1D
     Dates: start: 20121117, end: 20121206
  11. MECOBALAMIN [Concomitant]
     Active Substance: METHYLCOBALAMIN
     Dosage: 1500 ?G, 1D
     Dates: start: 20121029, end: 20121227
  12. LOXONIN [Concomitant]
     Active Substance: LOXOPROFEN SODIUM
     Dosage: 180 MG, 1D
     Dates: start: 20121031, end: 20130104
  13. MUCOSTA [Concomitant]
     Active Substance: REBAMIPIDE
     Dosage: 300 MG, 1D
     Dates: start: 20121031, end: 20130104
  14. METHYCOBAL [Concomitant]
     Active Substance: METHYLCOBALAMIN
     Dosage: 1500 ?G, 1D
     Dates: start: 20121105, end: 20121209
  15. PREDONINE [Suspect]
     Active Substance: PREDNISOLONE\PREDNISOLONE ACETATE\PREDNISOLONE SODIUM SUCCINATE
     Dosage: 7.5 MG, 1D
     Route: 048
     Dates: start: 20130620, end: 20140407
  16. BARACLUDE [Concomitant]
     Active Substance: ENTECAVIR
     Dosage: 0.5 MG, 1D
     Dates: start: 20121029, end: 20121206
  17. METHYCOBAL [Concomitant]
     Active Substance: METHYLCOBALAMIN
     Dosage: 1500 ?G, 1D
     Dates: start: 20140306, end: 20140407
  18. BONALON [Concomitant]
     Active Substance: ALENDRONATE SODIUM
     Dosage: 35 MG, 1D
     Dates: start: 20121120, end: 20121201
  19. ELTROMBOPAG [Suspect]
     Active Substance: ELTROMBOPAG
     Dosage: 25 MG, 1D
     Route: 048
     Dates: start: 20120718, end: 20121016
  20. PREDONINE [Suspect]
     Active Substance: PREDNISOLONE\PREDNISOLONE ACETATE\PREDNISOLONE SODIUM SUCCINATE
     Dosage: 7.5 MG, 1D
     Route: 048
     Dates: start: 20121029, end: 20130529
  21. AMLODIPINE [Concomitant]
     Active Substance: AMLODIPINE BESYLATE
     Dosage: 2.5 MG, 1D
     Dates: start: 20121029, end: 20121209
  22. LOXONIN [Concomitant]
     Active Substance: LOXOPROFEN SODIUM
     Dosage: 180 MG, 1D
     Dates: start: 20140307, end: 20140407
  23. PREDONINE [Suspect]
     Active Substance: PREDNISOLONE\PREDNISOLONE ACETATE\PREDNISOLONE SODIUM SUCCINATE
     Dosage: 10 MG, 1D
     Route: 048
     Dates: start: 20130530, end: 20130619
  24. RABEPRAZOLE SODIUM. [Concomitant]
     Active Substance: RABEPRAZOLE SODIUM
     Dosage: 10 MG, 1D
     Dates: start: 20121029, end: 20121115

REACTIONS (10)
  - Leukocytosis [Recovering/Resolving]
  - Blood bilirubin increased [Unknown]
  - Metastatic squamous cell carcinoma [Recovered/Resolved]
  - White blood cell count increased [Not Recovered/Not Resolved]
  - Anaemia [Not Recovered/Not Resolved]
  - Haemoglobin decreased [Recovering/Resolving]
  - Blood lactate dehydrogenase increased [Unknown]
  - Hypoalbuminaemia [Not Recovered/Not Resolved]
  - Leukocytosis [Recovering/Resolving]
  - Hypoalbuminaemia [Recovered/Resolved]

NARRATIVE: CASE EVENT DATE: 20121031
